FAERS Safety Report 5252475-6 (Version None)
Quarter: 2007Q1

REPORT INFORMATION
  Report Type: 
  Country: None (occurrence: None)
  Receive Date: 20070301
  Receipt Date: 20061129
  Transmission Date: 20070707
  Serious: No
  Sender: FDA-Public Use
  Company Number: US-BRISTOL-MYERS SQUIBB COMPANY-13595038

PATIENT
  Age: 54 Year
  Sex: Male
  Weight: 58 kg

DRUGS (12)
  1. ERBITUX [Suspect]
     Indication: NASAL SINUS CANCER
     Route: 042
  2. VENTOLIN [Concomitant]
  3. NEXIUM [Concomitant]
  4. SYNTHROID [Concomitant]
  5. MULTI-VITAMIN [Concomitant]
  6. METOPROLOL SUCCINATE [Concomitant]
  7. HYDROCODONE WITH TYLENOL [Concomitant]
  8. TYLENOL W/ CODEINE [Concomitant]
  9. TYLENOL [Concomitant]
     Indication: PREMEDICATION
  10. BENADRYL [Concomitant]
     Indication: PREMEDICATION
  11. KYTRIL [Concomitant]
     Indication: PREMEDICATION
  12. METOCLOPRAMIDE [Concomitant]
     Indication: PREMEDICATION

REACTIONS (1)
  - EXTRAVASATION [None]
